FAERS Safety Report 10177750 (Version 1)
Quarter: 2014Q2

REPORT INFORMATION
  Report Type: Spontaneous
  Country: US (occurrence: US)
  Receive Date: 20140516
  Receipt Date: 20140516
  Transmission Date: 20141212
  Serious: No
  Sender: FDA-Public Use
  Company Number: US-SANOFI-AVENTIS-2013SA052182

PATIENT
  Age: 62 Year
  Sex: Female

DRUGS (1)
  1. APIDRA [Suspect]
     Indication: DIABETES MELLITUS
     Dosage: 4-10 UNITS
     Route: 058
     Dates: start: 1999

REACTIONS (1)
  - Injection site haemorrhage [Unknown]
